FAERS Safety Report 5514887-2 (Version None)
Quarter: 2007Q4

REPORT INFORMATION
  Report Type: 
  Country: None (occurrence: None)
  Receive Date: 20071113
  Receipt Date: 20060920
  Transmission Date: 20080405
  Serious: No
  Sender: FDA-Public Use
  Company Number: A0620862A

PATIENT
  Age: 78 Year
  Sex: Female

DRUGS (5)
  1. COREG [Suspect]
     Indication: HYPERTENSION
     Dosage: 25TAB VARIABLE DOSE
     Route: 048
     Dates: start: 20040101
  2. COREG [Suspect]
     Dosage: 50MG TWICE PER DAY
     Route: 048
     Dates: start: 20060920
  3. AMIODARONE HCL [Concomitant]
  4. SYNTHROID [Concomitant]
  5. COUMADIN [Concomitant]

REACTIONS (2)
  - GAIT DISTURBANCE [None]
  - HEADACHE [None]
